FAERS Safety Report 5144625-7 (Version None)
Quarter: 2006Q4

REPORT INFORMATION
  Report Type: 
  Country: None (occurrence: None)
  Receive Date: 20061031
  Receipt Date: 20061025
  Transmission Date: 20070319
  Serious: No
  Sender: FDA-Public Use
  Company Number: E2020-00627-SPO-JP

PATIENT
  Age: 87 Year
  Sex: Male

DRUGS (2)
  1. ARICEPT [Suspect]
     Indication: DEMENTIA ALZHEIMER'S TYPE
     Dosage: 3 MG, 1 IN 1 D, ORAL; 5 MG, 1 IN 1 D, ORAL
     Route: 048
     Dates: start: 20041101, end: 20041110
  2. ARICEPT [Suspect]
     Indication: DEMENTIA ALZHEIMER'S TYPE
     Dosage: 3 MG, 1 IN 1 D, ORAL; 5 MG, 1 IN 1 D, ORAL
     Route: 048
     Dates: start: 20041111, end: 20060213

REACTIONS (3)
  - BONE MARROW FAILURE [None]
  - PANCYTOPENIA [None]
  - PNEUMONIA [None]
